FAERS Safety Report 22017909 (Version 1)
Quarter: 2023Q1

REPORT INFORMATION
  Report Type: Spontaneous
  Country: US (occurrence: None)
  Receive Date: 20230217
  Receipt Date: 20230217
  Transmission Date: 20230418
  Serious: Yes (Hospitalization)
  Sender: FDA-Public Use
  Company Number: None

PATIENT
  Sex: Male

DRUGS (23)
  1. POMALYST [Suspect]
     Active Substance: POMALIDOMIDE
     Indication: Plasma cell myeloma
     Route: 048
     Dates: start: 20180914
  2. ACYCLOVIR CAP [Concomitant]
  3. ASPIRIN CHW [Concomitant]
  4. ATORVASTATIN [Concomitant]
     Active Substance: ATORVASTATIN
  5. ATORVASTATIN [Concomitant]
     Active Substance: ATORVASTATIN
  6. BACTRIM TAB [Concomitant]
  7. CALCIUM [Concomitant]
  8. CHLORHEX GLU SOL [Concomitant]
  9. DEXAMETHASON TAB [Concomitant]
  10. GLIMEPIRIDE TAB [Concomitant]
  11. INSULIN SYRG MIS [Concomitant]
  12. LEVAQUIN TAB [Concomitant]
  13. LEVEMIR INJ [Concomitant]
  14. METFORMIN TAB [Concomitant]
  15. MULTIPLE VIT TAB [Concomitant]
  16. PEPCID TAB [Concomitant]
  17. POT CHLORIDE TAB [Concomitant]
  18. PROCHLORPER TAB [Concomitant]
  19. TRULICITY INJ [Concomitant]
  20. VALTREX TAB [Concomitant]
  21. VICTOZA INJ [Concomitant]
  22. VITAMIN D CAP [Concomitant]
  23. ZOFRAN [Concomitant]
     Active Substance: ONDANSETRON HYDROCHLORIDE

REACTIONS (1)
  - Pneumonia [None]
